FAERS Safety Report 6093981-4 (Version None)
Quarter: 2009Q1

REPORT INFORMATION
  Report Type: 
  Country: None (occurrence: None)
  Receive Date: 20090226
  Receipt Date: 20090219
  Transmission Date: 20090719
  Serious: Yes (Other)
  Sender: FDA-Public Use
  Company Number: B0546779A

PATIENT
  Age: 64 Year
  Sex: Male

DRUGS (11)
  1. PAXIL [Suspect]
     Indication: DEPRESSION
     Route: 048
     Dates: start: 20080701, end: 20081017
  2. MICARDIS [Concomitant]
     Dosage: 20MG PER DAY
     Route: 048
  3. GASMOTIN [Concomitant]
     Dosage: 15MG PER DAY
     Route: 048
  4. MEILAX [Concomitant]
     Dosage: 1MG PER DAY
     Route: 048
  5. ROHYPNOL [Concomitant]
     Dosage: 1MG PER DAY
     Route: 048
  6. MYSLEE [Concomitant]
     Dosage: 10MG PER DAY
     Route: 048
  7. RISPERDAL [Concomitant]
     Dosage: 1MG PER DAY
     Route: 048
  8. SETIPTILINE MALEATE [Concomitant]
     Dates: start: 20080101
  9. MIANSERIN [Concomitant]
     Dates: start: 20080101
  10. MOSAPRIDE [Concomitant]
     Dates: start: 20080101
  11. UNKNOWN DRUG [Concomitant]
     Dates: start: 20080101

REACTIONS (5)
  - AKATHISIA [None]
  - HYPOMANIA [None]
  - IMPULSIVE BEHAVIOUR [None]
  - IRRITABILITY [None]
  - RESTLESSNESS [None]
